FAERS Safety Report 14779203 (Version 2)
Quarter: 2018Q2

REPORT INFORMATION
  Report Type: Spontaneous
  Country: SE (occurrence: SE)
  Receive Date: 20180419
  Receipt Date: 20180510
  Transmission Date: 20180711
  Serious: Yes (Life-Threatening, Hospitalization, Disabling)
  Sender: FDA-Public Use
  Company Number: SE-BAUSCH-BL-2018-010625

PATIENT
  Age: 60 Year
  Sex: Female

DRUGS (12)
  1. CANODERM [Concomitant]
     Indication: PRODUCT USED FOR UNKNOWN INDICATION
     Dosage: EMULSION COAT
  2. OMEPRAZOL ACTAVIS [Concomitant]
     Active Substance: OMEPRAZOLE
     Indication: PRODUCT USED FOR UNKNOWN INDICATION
     Dosage: ENTEROCAPEL, HARD
  3. SELOKENZOC [Concomitant]
     Active Substance: METOPROLOL SUCCINATE
     Indication: PRODUCT USED FOR UNKNOWN INDICATION
     Dosage: DEPOTTABLETT
  4. DICLOFENAC [Suspect]
     Active Substance: DICLOFENAC
     Indication: ARTHRALGIA
     Dosage: 50 1X1-2
     Route: 048
     Dates: start: 20171212, end: 20171223
  5. AERIUS [Concomitant]
     Active Substance: DESLORATADINE
     Indication: PRODUCT USED FOR UNKNOWN INDICATION
  6. ACETYLCYSTEIN MEDA [Concomitant]
     Indication: PRODUCT USED FOR UNKNOWN INDICATION
  7. CITODON [Concomitant]
     Active Substance: ACETAMINOPHEN\CODEINE PHOSPHATE
     Indication: PRODUCT USED FOR UNKNOWN INDICATION
     Dosage: 500 MG/30 MG
  8. SALURES [Concomitant]
     Active Substance: BENDROFLUMETHIAZIDE
     Indication: PRODUCT USED FOR UNKNOWN INDICATION
  9. OVIXAN [Concomitant]
     Indication: PRODUCT USED FOR UNKNOWN INDICATION
     Route: 065
  10. PEVISONE [Concomitant]
     Active Substance: ECONAZOLE
     Indication: PRODUCT USED FOR UNKNOWN INDICATION
     Dosage: 1 MG/G + 10 MG/G
  11. BRICANYL [Concomitant]
     Active Substance: TERBUTALINE SULFATE
     Indication: PRODUCT USED FOR UNKNOWN INDICATION
     Dosage: INHALATIONSPULVER; 0,5 MG/DOS INHALATIONSPULVER
  12. BETNOVAT [Concomitant]
     Active Substance: BETAMETHASONE
     Indication: PRODUCT USED FOR UNKNOWN INDICATION
     Dosage: 1 MG/ML EMULSION COAT

REACTIONS (1)
  - Subarachnoid haemorrhage [Not Recovered/Not Resolved]

NARRATIVE: CASE EVENT DATE: 20171223
